FAERS Safety Report 11938886 (Version 1)
Quarter: 2016Q1

REPORT INFORMATION
  Report Type: Other
  Country: FR (occurrence: FR)
  Receive Date: 20160122
  Receipt Date: 20160122
  Transmission Date: 20160526
  Serious: Yes (Hospitalization)
  Sender: FDA-Public Use
  Company Number: FR-MYLANLABS-2016M1002636

PATIENT

DRUGS (2)
  1. VERAPAMIL MYLAN L.P. 240 MG, COMPRIM? P ELLICUL? ? LIB?RATION P [Suspect]
     Active Substance: VERAPAMIL HYDROCHLORIDE
     Indication: PRODUCT USED FOR UNKNOWN INDICATION
     Dosage: 240 MG, QD
     Route: 048
     Dates: start: 2015
  2. VERAPAMIL [Suspect]
     Active Substance: VERAPAMIL HYDROCHLORIDE
     Indication: PRODUCT USED FOR UNKNOWN INDICATION
     Dosage: 240 MG, QD
     Route: 048

REACTIONS (3)
  - Medication error [Unknown]
  - Drug administration error [None]
  - Confusional state [Unknown]

NARRATIVE: CASE EVENT DATE: 20150926
